FAERS Safety Report 7609345-5 (Version None)
Quarter: 2011Q3

REPORT INFORMATION
  Report Type: 
  Country: None (occurrence: None)
  Receive Date: 20110714
  Receipt Date: 20110701
  Transmission Date: 20111222
  Serious: Yes (Other)
  Sender: FDA-Public Use
  Company Number: US-BAYER-2011-022586

PATIENT
  Age: 34 Year
  Sex: Female
  Weight: 63.492 kg

DRUGS (2)
  1. NEXIUM [Concomitant]
  2. YAZ [Suspect]
     Indication: ACNE
     Dosage: UNK
     Dates: start: 20080301, end: 20090901

REACTIONS (11)
  - VISUAL IMPAIRMENT [None]
  - PARAESTHESIA [None]
  - ARRHYTHMIA [None]
  - MEMORY IMPAIRMENT [None]
  - DISTURBANCE IN ATTENTION [None]
  - DIZZINESS [None]
  - CONFUSIONAL STATE [None]
  - PALPITATIONS [None]
  - DYSPNOEA [None]
  - EAR DISCOMFORT [None]
  - DYSPHAGIA [None]
